FAERS Safety Report 19239697 (Version 2)
Quarter: 2021Q2

REPORT INFORMATION
  Report Type: Report from Study
  Country: None (occurrence: SE)
  Receive Date: 20210511
  Receipt Date: 20210514
  Transmission Date: 20210717
  Serious: Yes (Disabling, Other)
  Sender: FDA-Public Use
  Company Number: SE-ABBVIE-19S-150-2685185-00

PATIENT
  Age: 64 Year
  Sex: Female
  Weight: 52 kg

DRUGS (18)
  1. DUODOPA [Suspect]
     Active Substance: CARBIDOPA\LEVODOPA
     Route: 050
     Dates: start: 20160922
  2. DUODOPA [Suspect]
     Active Substance: CARBIDOPA\LEVODOPA
     Dosage: CONTINUOUS DOSE DAY DECREASED FROM 3.0 ML/H TO 2.9 ML/H.
     Route: 050
     Dates: start: 2020, end: 2020
  3. BEHEPAN [Concomitant]
     Indication: PRODUCT USED FOR UNKNOWN INDICATION
  4. DUODOPA [Suspect]
     Active Substance: CARBIDOPA\LEVODOPA
     Indication: PARKINSON^S DISEASE
     Route: 050
     Dates: start: 20160905, end: 2016
  5. DUODOPA [Suspect]
     Active Substance: CARBIDOPA\LEVODOPA
     Dosage: MORNING DOSE: 3.0 ML.?CONTINUOUS DOSE: 3.1 ML/H.?CONTINUOUS DOSE NIGHT 2.8 ML/H
     Route: 050
     Dates: start: 20200415, end: 2020
  6. DUODOPA [Suspect]
     Active Substance: CARBIDOPA\LEVODOPA
     Dosage: CURRENT CONTINUOUS DOSE DAY: 3.0 ML/H. CONTINUOUS DOSE NIGHT DECREASED TO 2.8 ML/H
     Route: 050
     Dates: start: 20201111
  7. DUODOPA [Suspect]
     Active Substance: CARBIDOPA\LEVODOPA
     Dosage: CD NIGHT INCREASED TO 2.8 ML/H (2.6 ML/H EARLIER)
     Route: 050
  8. DUODOPA [Suspect]
     Active Substance: CARBIDOPA\LEVODOPA
     Dosage: CD DECREASED FROM 3.1 ML/H TO 3.0 ML/H,?CD NIGHT DECREASED FROM 2.8 ML/H TO 2.7 ML/H.
     Route: 050
     Dates: start: 20200528, end: 20200528
  9. VITAMIN D [Concomitant]
     Active Substance: VITAMIN D NOS
     Indication: PRODUCT USED FOR UNKNOWN INDICATION
  10. DUODOPA [Suspect]
     Active Substance: CARBIDOPA\LEVODOPA
     Dosage: CURRENT THERAPY DURATION: REMAINS AT 24H
     Route: 050
     Dates: start: 20210506
  11. FOLIC ACID. [Concomitant]
     Active Substance: FOLIC ACID
     Indication: PRODUCT USED FOR UNKNOWN INDICATION
  12. DUODOPA [Suspect]
     Active Substance: CARBIDOPA\LEVODOPA
     Dosage: CD DAY DECREASED FROM 3.0 TO 2.8 ML/H,
     Route: 050
  13. DUODOPA [Suspect]
     Active Substance: CARBIDOPA\LEVODOPA
     Dosage: CD DAY 3.0 ML/H NIGHT 2.6 ML/H
     Route: 050
  14. DUODOPA [Suspect]
     Active Substance: CARBIDOPA\LEVODOPA
     Dosage: CD DAY 3.0 ML/H , ED 1.0 ML
     Route: 050
  15. DUODOPA [Suspect]
     Active Substance: CARBIDOPA\LEVODOPA
     Dosage: CD DURING DAY INCREASED TO 3.0 ML/H.?CD DURING NIGHT IS 2.8 ML/H
     Route: 050
     Dates: start: 20200401, end: 202004
  16. DUODOPA [Suspect]
     Active Substance: CARBIDOPA\LEVODOPA
     Dosage: CD DAY 2.8 ML/H, NIGHT 2.6 ML/H
     Route: 050
  17. DUODOPA [Suspect]
     Active Substance: CARBIDOPA\LEVODOPA
     Dosage: CD DAY INCREASED FROM 2.9ML/H TO 3.0 ML/H?CD NIGHT INCREASED FROM 2.7ML/H TO 2.8ML/H
     Route: 050
     Dates: start: 20200728, end: 2020
  18. DUODOPA [Suspect]
     Active Substance: CARBIDOPA\LEVODOPA
     Dosage: MD: 3.0 ML.?CD: 3.0 ML/H.?CDN2.7 ML/H?EXTRA DOSE: 1.0 ML
     Route: 050
     Dates: start: 20200528, end: 2020

REACTIONS (40)
  - Incorrect dose administered [Not Recovered/Not Resolved]
  - Paraesthesia [Not Recovered/Not Resolved]
  - Pain in extremity [Not Recovered/Not Resolved]
  - Emotional distress [Unknown]
  - On and off phenomenon [Not Recovered/Not Resolved]
  - Malaise [Unknown]
  - Drug ineffective [Unknown]
  - Toothache [Unknown]
  - Dental discomfort [Recovering/Resolving]
  - Stress [Unknown]
  - Nightmare [Not Recovered/Not Resolved]
  - Drug ineffective [Recovered/Resolved]
  - Wheelchair user [Not Recovered/Not Resolved]
  - Hemiplegia [Not Recovered/Not Resolved]
  - Discomfort [Recovering/Resolving]
  - Mental impairment [Not Recovered/Not Resolved]
  - Depressed mood [Not Recovered/Not Resolved]
  - Hallucination [Recovered/Resolved]
  - Emotional distress [Recovering/Resolving]
  - Feeling abnormal [Unknown]
  - Intervertebral disc protrusion [Unknown]
  - Skin burning sensation [Not Recovered/Not Resolved]
  - Loss of personal independence in daily activities [Unknown]
  - Hyperkinesia [Recovered/Resolved]
  - Insomnia [Recovered/Resolved]
  - Dyskinesia [Recovered/Resolved]
  - Depressed mood [Recovering/Resolving]
  - Initial insomnia [Unknown]
  - Anxiety [Unknown]
  - Muscle spasms [Not Recovered/Not Resolved]
  - Depression [Not Recovered/Not Resolved]
  - Hypokinesia [Recovered/Resolved]
  - Hyperkinesia [Not Recovered/Not Resolved]
  - Delusion [Unknown]
  - Crying [Unknown]
  - Pain of skin [Not Recovered/Not Resolved]
  - Musculoskeletal stiffness [Unknown]
  - Fatigue [Not Recovered/Not Resolved]
  - Pain [Not Recovered/Not Resolved]
  - Insomnia [Not Recovered/Not Resolved]

NARRATIVE: CASE EVENT DATE: 2020
